FAERS Safety Report 13012645 (Version 3)
Quarter: 2017Q1

REPORT INFORMATION
  Report Type: Report from Study
  Country: US (occurrence: US)
  Receive Date: 20161209
  Receipt Date: 20170120
  Transmission Date: 20170428
  Serious: Yes (Death)
  Sender: FDA-Public Use
  Company Number: US-ROCHE-1866158

PATIENT
  Age: 73 Year
  Sex: Male
  Weight: 80 kg

DRUGS (6)
  1. ESBRIET [Suspect]
     Active Substance: PIRFENIDONE
     Dosage: ONGOING: NO
     Route: 048
     Dates: start: 201611
  2. TAMSULOSIN [Concomitant]
     Active Substance: TAMSULOSIN
     Indication: BENIGN PROSTATIC HYPERPLASIA
     Route: 048
     Dates: start: 20150421
  3. ASPIRIN. [Concomitant]
     Active Substance: ASPIRIN
     Indication: CORONARY ARTERY DISEASE
     Dosage: 1 TAB DAILY
     Route: 048
     Dates: start: 20161011
  4. ESBRIET [Suspect]
     Active Substance: PIRFENIDONE
     Dosage: 3 CAPSULES
     Route: 048
  5. ESBRIET [Suspect]
     Active Substance: PIRFENIDONE
     Indication: IDIOPATHIC PULMONARY FIBROSIS
     Dosage: 3 CAPSULES TID
     Route: 048
     Dates: start: 20161119, end: 20161204
  6. ISOSORBIDE MONONITRATE. [Concomitant]
     Active Substance: ISOSORBIDE MONONITRATE
     Indication: CORONARY ARTERY DISEASE
     Route: 048

REACTIONS (3)
  - Pneumonia [Fatal]
  - Pulmonary arterial hypertension [Fatal]
  - Atrial fibrillation [Fatal]

NARRATIVE: CASE EVENT DATE: 20161120
